FAERS Safety Report 7071884-6 (Version None)
Quarter: 2010Q4

REPORT INFORMATION
  Report Type: 
  Country: None (occurrence: None)
  Receive Date: 20101029
  Receipt Date: 20091030
  Transmission Date: 20110411
  Serious: No
  Sender: FDA-Public Use
  Company Number: A0814210A

PATIENT
  Age: 68 Year
  Sex: Female

DRUGS (8)
  1. ADVAIR DISKUS 100/50 [Suspect]
     Indication: ASTHMA
     Dosage: 1PUFF TWICE PER DAY
     Route: 055
     Dates: start: 20060101
  2. SINGULAIR [Concomitant]
  3. LORATADINE [Concomitant]
  4. CARVEDILOL [Concomitant]
  5. METFORMIN [Concomitant]
  6. SPIRONOLACTONE [Concomitant]
  7. LIPITOR [Concomitant]
  8. COZAAR [Concomitant]

REACTIONS (5)
  - COUGH [None]
  - DRUG INEFFECTIVE [None]
  - DYSPHONIA [None]
  - SINUSITIS [None]
  - THROAT IRRITATION [None]
